FAERS Safety Report 8843502 (Version 1)
Quarter: 2012Q4

REPORT INFORMATION
  Report Type: 
  Country: FR (occurrence: FR)
  Receive Date: 20121016
  Receipt Date: 20121016
  Transmission Date: 20130627
  Serious: Yes (Death, Hospitalization, Other)
  Sender: FDA-Public Use
  Company Number: FR-ELI_LILLY_AND_COMPANY-FR201210003421

PATIENT
  Age: 70 Year
  Sex: Male

DRUGS (5)
  1. ALIMTA [Suspect]
     Dosage: 500 mg/m2, unknown
     Route: 042
     Dates: end: 20120723
  2. AVASTIN [Concomitant]
     Dosage: 15 mg/kg, unknown
     Dates: end: 20120723
  3. CARBOPLATINE MERCK [Concomitant]
     Dosage: 412 mg, unknown
  4. SKENAN [Concomitant]
     Dosage: UNK
     Dates: end: 20120803
  5. ACTISKENAN [Concomitant]
     Dosage: UNK
     Dates: end: 20120803

REACTIONS (9)
  - Encephalopathy [Fatal]
  - Hypothermia [Unknown]
  - Respiratory distress [Unknown]
  - Thrombocytopenia [Unknown]
  - Anaemia [Unknown]
  - Blood fibrinogen increased [Unknown]
  - Bacterial infection [Unknown]
  - Toxicity to various agents [Unknown]
  - CSF protein increased [Unknown]
